FAERS Safety Report 20314411 (Version 1)
Quarter: 2022Q1

REPORT INFORMATION
  Report Type: Spontaneous
  Country: US (occurrence: US)
  Receive Date: 20220109
  Receipt Date: 20220109
  Transmission Date: 20220423
  Serious: No
  Sender: FDA-Public Use
  Company Number: US-BoehringerIngelheim-2022-BI-147261

PATIENT
  Age: 21 Year
  Sex: Male

DRUGS (1)
  1. SPIRIVA RESPIMAT [Suspect]
     Active Substance: TIOTROPIUM BROMIDE
     Indication: Asthma
     Dosage: 1.25 MCG, 2 INHALATIONS ONCE DAILY
     Dates: start: 20211216, end: 20211217

REACTIONS (3)
  - Dyspnoea [Unknown]
  - Chest pain [Unknown]
  - Wheezing [Unknown]

NARRATIVE: CASE EVENT DATE: 20211216
